FAERS Safety Report 13913143 (Version 1)
Quarter: 2017Q3

REPORT INFORMATION
  Report Type: Spontaneous
  Country: US (occurrence: US)
  Receive Date: 20170828
  Receipt Date: 20170828
  Transmission Date: 20171127
  Serious: No
  Sender: FDA-Public Use
  Company Number: US-ROCHE-1124070

PATIENT
  Sex: Male

DRUGS (6)
  1. INTAL [Concomitant]
     Active Substance: CROMOLYN SODIUM
  2. PROVENTIL [Concomitant]
     Active Substance: ALBUTEROL
  3. NUTROPIN [Suspect]
     Active Substance: SOMATROPIN
     Indication: PRECOCIOUS PUBERTY
     Route: 058
  4. LUPRON DEPOT [Concomitant]
     Active Substance: LEUPROLIDE ACETATE
     Route: 030
  5. VENTOLIN [Concomitant]
     Active Substance: ALBUTEROL SULFATE
  6. ALBUTEROL. [Concomitant]
     Active Substance: ALBUTEROL

REACTIONS (1)
  - Migraine [Unknown]
